FAERS Safety Report 15606826 (Version 2)
Quarter: 2018Q4

REPORT INFORMATION
  Report Type: Spontaneous
  Country: US (occurrence: US)
  Receive Date: 20181112
  Receipt Date: 20181121
  Transmission Date: 20190205
  Serious: Yes (Disabling)
  Sender: FDA-Public Use
  Company Number: US-GLAXOSMITHKLINE-US2018GSK203781

PATIENT
  Sex: Male

DRUGS (4)
  1. SUMATRIPTAN (SUMATRIPTAN SUCCINATE) SOLUTION FOR INJECTION IN PRE-FILL [Suspect]
     Active Substance: SUMATRIPTAN
     Indication: MIGRAINE
     Dosage: 6 MG, UNK
     Route: 058
  2. TOPAMAX [Concomitant]
     Active Substance: TOPIRAMATE
  3. AMITRIPTYLINE HYDROCHLORIDE TABLET [Concomitant]
     Indication: MIGRAINE
  4. BOTOX [Concomitant]
     Active Substance: ONABOTULINUMTOXINA

REACTIONS (3)
  - Product dose omission [Unknown]
  - Condition aggravated [Unknown]
  - Drug ineffective [Unknown]
